FAERS Safety Report 7940012-4 (Version None)
Quarter: 2011Q4

REPORT INFORMATION
  Report Type: 
  Country: None (occurrence: None)
  Receive Date: 20111125
  Receipt Date: 20111122
  Transmission Date: 20120403
  Serious: No
  Sender: FDA-Public Use
  Company Number: US-PFIZER INC-2011286829

PATIENT
  Sex: Female
  Weight: 72.109 kg

DRUGS (2)
  1. EFFEXOR [Suspect]
     Indication: DEPRESSION
     Dosage: UNK
     Route: 048
     Dates: start: 20110101
  2. EFFEXOR [Suspect]
     Indication: PANIC ATTACK
     Dosage: 37.5 MG, DAILY
     Route: 048
     Dates: start: 20110901

REACTIONS (1)
  - HAIR COLOUR CHANGES [None]
